FAERS Safety Report 10221081 (Version 2)
Quarter: 2014Q2

REPORT INFORMATION
  Report Type: Spontaneous
  Country: US (occurrence: US)
  Receive Date: 20140606
  Receipt Date: 20140625
  Transmission Date: 20141212
  Serious: Yes (Other)
  Sender: FDA-Public Use
  Company Number: US-ABBVIE-14P-163-1242350-00

PATIENT
  Age: 52 Year
  Sex: Female
  Weight: 113.5 kg

DRUGS (4)
  1. DEPAKOTE ER [Suspect]
     Indication: CONVULSION
     Dosage: 4 TABLETS, AT BEDTIME
     Dates: start: 1999, end: 20140527
  2. KEPPRA [Concomitant]
     Indication: CONVULSION
     Dates: end: 201404
  3. METOPROLOL [Concomitant]
     Indication: HYPERTENSION
  4. LISINOPRIL [Concomitant]
     Indication: HYPERTENSION

REACTIONS (2)
  - Generalised tonic-clonic seizure [Recovered/Resolved]
  - Tongue injury [Recovered/Resolved]
